FAERS Safety Report 18896484 (Version 1)
Quarter: 2021Q1

REPORT INFORMATION
  Report Type: Spontaneous
  Country: GB (occurrence: GB)
  Receive Date: 20210216
  Receipt Date: 20210216
  Transmission Date: 20210420
  Serious: Yes (Other)
  Sender: FDA-Public Use
  Company Number: GB-ORION CORPORATION ORION PHARMA-ENTC2021-0041

PATIENT
  Sex: Female

DRUGS (2)
  1. STALEVO [Suspect]
     Active Substance: CARBIDOPA\ENTACAPONE\LEVODOPA
     Dosage: STRENGTH: 100/25/200 ?100 (2 TIMES PER DAY)
     Route: 065
  2. STALEVO [Suspect]
     Active Substance: CARBIDOPA\ENTACAPONE\LEVODOPA
     Indication: PARKINSON^S DISEASE
     Dosage: 125 (3 TIMES PER DAY)
     Route: 065

REACTIONS (4)
  - Product complaint [Unknown]
  - Product quality issue [Unknown]
  - Parkinson^s disease [Not Recovered/Not Resolved]
  - Product label issue [Unknown]
